FAERS Safety Report 23687453 (Version 1)
Quarter: 2024Q1

REPORT INFORMATION
  Report Type: Spontaneous
  Country: US (occurrence: None)
  Receive Date: 20240329
  Receipt Date: 20240329
  Transmission Date: 20240410
  Serious: Yes (Other)
  Sender: FDA-Public Use
  Company Number: None

PATIENT
  Age: 96 Year
  Sex: Female
  Weight: 91.6 kg

DRUGS (1)
  1. ENOXAPARIN [Suspect]
     Active Substance: ENOXAPARIN
     Indication: Thrombosis prophylaxis
     Dosage: FREQUENCY : ONCE;?OTHER ROUTE : SUB-Q;?
     Route: 050
     Dates: start: 20240329

REACTIONS (1)
  - Rash [None]

NARRATIVE: CASE EVENT DATE: 20240329
